FAERS Safety Report 4681721-2 (Version None)
Quarter: 2005Q2

REPORT INFORMATION
  Report Type: 
  Country: None (occurrence: None)
  Receive Date: 20050602
  Receipt Date: 20050520
  Transmission Date: 20051028
  Serious: Yes (Hospitalization, Other)
  Sender: FDA-Public Use
  Company Number: HQWYE845201JUL04

PATIENT
  Age: 19 Year
  Sex: Female

DRUGS (18)
  1. RAPAMUNE [Suspect]
     Indication: IMMUNOSUPPRESSANT DRUG THERAPY
     Dosage: 4 MG 1X PER 1 DAY; ORAL
     Route: 048
     Dates: start: 20030223
  2. PREDNISONE TAB [Concomitant]
  3. TACROLIMUS [Concomitant]
  4. TACROLIMUS [Concomitant]
  5. CALCIUM CARBONATE [Concomitant]
  6. CALCITRIOL [Concomitant]
  7. NIFEDIPINE [Concomitant]
  8. RANITIDINE [Concomitant]
  9. RANITIDINE [Concomitant]
  10. ZYRTEC [Concomitant]
  11. MONTELUKAST [Concomitant]
  12. FLUTICASONE PROPIONATE [Concomitant]
  13. FLUTICASONE PROPIONATE [Concomitant]
  14. BACTRIM [Concomitant]
  15. VALGANCICLOVIR (VALGANCICLOVIR) [Concomitant]
  16. K-PHOS (POTASSIUM PHOSPHATE MONOBASIC) [Concomitant]
  17. ALBUTEROL [Concomitant]
  18. RAPAMUNE [Suspect]

REACTIONS (13)
  - DISEASE RECURRENCE [None]
  - DYSURIA [None]
  - GASTROINTESTINAL PAIN [None]
  - HAEMATURIA [None]
  - HYDRONEPHROSIS [None]
  - IMMUNOSUPPRESSION [None]
  - INFLAMMATION [None]
  - KIDNEY TRANSPLANT REJECTION [None]
  - MASS [None]
  - PYREXIA [None]
  - THROMBOSIS [None]
  - URINARY RETENTION [None]
  - URINARY TRACT INFECTION [None]
